FAERS Safety Report 14374672 (Version 1)
Quarter: 2018Q1

REPORT INFORMATION
  Report Type: Spontaneous
  Country: US (occurrence: US)
  Receive Date: 20180111
  Receipt Date: 20180111
  Transmission Date: 20180509
  Serious: No
  Sender: FDA-Public Use
  Company Number: US-CELGENEUS-USA-20180102322

PATIENT
  Age: 70 Year
  Sex: Male

DRUGS (1)
  1. OTEZLA [Suspect]
     Active Substance: APREMILAST
     Indication: PSORIATIC ARTHROPATHY
     Dosage: 60 MILLIGRAM
     Route: 048
     Dates: start: 201712

REACTIONS (7)
  - Chills [Not Recovered/Not Resolved]
  - Eye infection [Not Recovered/Not Resolved]
  - Stomach mass [Recovering/Resolving]
  - Night sweats [Not Recovered/Not Resolved]
  - Body temperature increased [Recovering/Resolving]
  - Tremor [Not Recovered/Not Resolved]
  - Gastrooesophageal reflux disease [Recovering/Resolving]

NARRATIVE: CASE EVENT DATE: 201712
